FAERS Safety Report 17622643 (Version 3)
Quarter: 2020Q3

REPORT INFORMATION
  Report Type: Spontaneous
  Country: US (occurrence: US)
  Receive Date: 20200403
  Receipt Date: 20200812
  Transmission Date: 20201102
  Serious: Yes (Other)
  Sender: FDA-Public Use
  Company Number: US-PFIZER INC-2020136607

PATIENT
  Age: 61 Year
  Sex: Female

DRUGS (1)
  1. LYRICA [Suspect]
     Active Substance: PREGABALIN
     Dosage: UNK

REACTIONS (6)
  - Fibromyalgia [Unknown]
  - Multiple sclerosis [Unknown]
  - Back pain [Unknown]
  - Dysstasia [Unknown]
  - Limb discomfort [Unknown]
  - Pain in extremity [Unknown]
